FAERS Safety Report 10514106 (Version 1)
Quarter: 2014Q4

REPORT INFORMATION
  Report Type: Spontaneous
  Country: US (occurrence: US)
  Receive Date: 20141013
  Receipt Date: 20141013
  Transmission Date: 20150528
  Serious: Yes (Hospitalization)
  Sender: FDA-Public Use
  Company Number: US-RECKITT BENCKISER PHARMACEUTICAL, INC-RB-72173-2014

PATIENT
  Age: 32 Year
  Sex: Female

DRUGS (2)
  1. SUBOXONE [Suspect]
     Active Substance: BUPRENORPHINE HYDROCHLORIDE\NALOXONE HYDROCHLORIDE
     Indication: DRUG DEPENDENCE
     Dosage: 4 MG, DAILY
     Route: 060
     Dates: start: 2014, end: 20140421
  2. SUBOXONE [Suspect]
     Active Substance: BUPRENORPHINE HYDROCHLORIDE\NALOXONE HYDROCHLORIDE
     Dosage: 2 MG, DAILY
     Route: 060
     Dates: start: 20140508, end: 20140916

REACTIONS (10)
  - Chills [Recovering/Resolving]
  - Procedural pain [Recovering/Resolving]
  - Pain [Recovering/Resolving]
  - Drug withdrawal syndrome [Recovering/Resolving]
  - Insomnia [Recovering/Resolving]
  - Drug ineffective [Recovered/Resolved]
  - Influenza like illness [Recovering/Resolving]
  - Abdominal discomfort [Recovered/Resolved]
  - Gallbladder disorder [Recovered/Resolved]
  - Hyperhidrosis [Recovering/Resolving]

NARRATIVE: CASE EVENT DATE: 201404
